FAERS Safety Report 21308477 (Version 1)
Quarter: 2022Q3

REPORT INFORMATION
  Report Type: Report from Study
  Country: FR (occurrence: FR)
  Receive Date: 20220908
  Receipt Date: 20220908
  Transmission Date: 20221026
  Serious: Yes (Death, Hospitalization)
  Sender: FDA-Public Use
  Company Number: FR-BRISTOL-MYERS SQUIBB COMPANY-2022-097198

PATIENT
  Age: 75 Year
  Sex: Male

DRUGS (17)
  1. REVLIMID [Suspect]
     Active Substance: LENALIDOMIDE
     Indication: Plasma cell myeloma
     Dosage: QD
     Route: 048
     Dates: start: 20201117, end: 20201207
  2. REVLIMID [Suspect]
     Active Substance: LENALIDOMIDE
     Dosage: NO DRUG WAS ADMINISTERED
     Route: 065
     Dates: start: 20201208, end: 20201213
  3. REVLIMID [Suspect]
     Active Substance: LENALIDOMIDE
     Dosage: QD
     Route: 048
     Dates: start: 20201214, end: 20210103
  4. REVLIMID [Suspect]
     Active Substance: LENALIDOMIDE
     Dosage: NO DRUG WAS ADMINISTERED
     Route: 065
     Dates: start: 20210104, end: 20210110
  5. REVLIMID [Suspect]
     Active Substance: LENALIDOMIDE
     Dosage: QD
     Route: 048
     Dates: start: 20210111, end: 20210131
  6. REVLIMID [Suspect]
     Active Substance: LENALIDOMIDE
     Dosage: NO DRUG WAS ADMINISTERED
     Route: 065
     Dates: start: 20210201, end: 20210207
  7. REVLIMID [Suspect]
     Active Substance: LENALIDOMIDE
     Dosage: QD
     Route: 048
  8. REVLIMID [Suspect]
     Active Substance: LENALIDOMIDE
     Dosage: NO DRUG ADMINISTERED
     Route: 065
     Dates: start: 20210301, end: 20210307
  9. REVLIMID [Suspect]
     Active Substance: LENALIDOMIDE
     Dosage: QD
     Route: 048
     Dates: start: 20210308, end: 20210328
  10. REVLIMID [Suspect]
     Active Substance: LENALIDOMIDE
     Dosage: NO DRUG ADMISNISTRED
     Route: 065
     Dates: start: 20210329, end: 20210404
  11. REVLIMID [Suspect]
     Active Substance: LENALIDOMIDE
     Dosage: QD
     Route: 048
     Dates: start: 20190408, end: 20190428
  12. REVLIMID [Suspect]
     Active Substance: LENALIDOMIDE
     Dosage: NO DRUG ADMINISTERED
     Route: 065
     Dates: start: 20190429, end: 20190505
  13. REVLIMID [Suspect]
     Active Substance: LENALIDOMIDE
     Dosage: QD
     Route: 048
     Dates: start: 20190506, end: 20190526
  14. REVLIMID [Suspect]
     Active Substance: LENALIDOMIDE
     Dosage: NO DRUG ADMINISTERED
     Route: 065
     Dates: start: 20190527, end: 20190602
  15. REVLIMID [Suspect]
     Active Substance: LENALIDOMIDE
     Dosage: QD
     Route: 048
     Dates: start: 20190603, end: 20190623
  16. REVLIMID [Suspect]
     Active Substance: LENALIDOMIDE
     Dosage: NO DRUG ADMINISTERED
     Route: 065
     Dates: start: 20190624, end: 20190630
  17. DEXAMETHASONE [Suspect]
     Active Substance: DEXAMETHASONE
     Indication: Plasma cell myeloma
     Route: 048
     Dates: start: 20190409, end: 20190701

REACTIONS (5)
  - General physical health deterioration [Fatal]
  - Asthenia [Unknown]
  - Weight decreased [Unknown]
  - Dysphagia [Unknown]
  - Dyskinesia [Unknown]

NARRATIVE: CASE EVENT DATE: 20220822
